FAERS Safety Report 13093663 (Version 1)
Quarter: 2017Q1

REPORT INFORMATION
  Report Type: Spontaneous
  Country: FR (occurrence: FR)
  Receive Date: 20170106
  Receipt Date: 20170106
  Transmission Date: 20170428
  Serious: Yes (Death, Hospitalization)
  Sender: FDA-Public Use
  Company Number: FR-TEVA-725046ROM

PATIENT
  Age: 47 Year
  Sex: Male
  Weight: 87 kg

DRUGS (16)
  1. DOXORUBICIN TEVA [Suspect]
     Active Substance: DOXORUBICIN
     Indication: T-CELL LYMPHOMA
     Route: 042
     Dates: start: 20160912, end: 20160912
  2. VINCRISTINE HOSPIRA [Suspect]
     Active Substance: VINCRISTINE
     Indication: T-CELL LYMPHOMA
     Route: 042
     Dates: start: 20160912, end: 20160912
  3. ETOPOSIDE TEVA [Suspect]
     Active Substance: ETOPOSIDE
     Route: 042
     Dates: start: 2016, end: 2016
  4. DOXORUBICIN TEVA [Suspect]
     Active Substance: DOXORUBICIN
     Route: 042
     Dates: start: 2016, end: 2016
  5. ETOPOSIDE TEVA [Suspect]
     Active Substance: ETOPOSIDE
     Indication: T-CELL LYMPHOMA
     Route: 042
     Dates: start: 20160912
  6. ETOPOSIDE TEVA [Suspect]
     Active Substance: ETOPOSIDE
     Route: 042
     Dates: start: 20161024, end: 20161026
  7. DOXORUBICIN TEVA [Suspect]
     Active Substance: DOXORUBICIN
     Route: 042
     Dates: start: 2016, end: 2016
  8. DOXORUBICIN TEVA [Suspect]
     Active Substance: DOXORUBICIN
     Route: 042
     Dates: start: 20161024, end: 20161024
  9. ENDOXAN [Suspect]
     Active Substance: CYCLOPHOSPHAMIDE
     Route: 042
     Dates: start: 2016, end: 2016
  10. VINCRISTINE HOSPIRA [Suspect]
     Active Substance: VINCRISTINE
     Route: 042
     Dates: start: 20161024, end: 20161024
  11. ETOPOSIDE TEVA [Suspect]
     Active Substance: ETOPOSIDE
     Route: 042
     Dates: start: 2016, end: 2016
  12. ENDOXAN [Suspect]
     Active Substance: CYCLOPHOSPHAMIDE
     Route: 042
     Dates: start: 2016, end: 2016
  13. ENDOXAN [Suspect]
     Active Substance: CYCLOPHOSPHAMIDE
     Route: 042
     Dates: start: 20161024, end: 20161024
  14. VINCRISTINE HOSPIRA [Suspect]
     Active Substance: VINCRISTINE
     Route: 042
     Dates: start: 2016, end: 2016
  15. VINCRISTINE HOSPIRA [Suspect]
     Active Substance: VINCRISTINE
     Route: 042
     Dates: start: 2016, end: 2016
  16. ENDOXAN [Suspect]
     Active Substance: CYCLOPHOSPHAMIDE
     Indication: T-CELL LYMPHOMA
     Route: 042
     Dates: start: 20160912, end: 20160912

REACTIONS (2)
  - Respiratory failure [Fatal]
  - Febrile bone marrow aplasia [Fatal]

NARRATIVE: CASE EVENT DATE: 20161030
